FAERS Safety Report 8082514-9 (Version None)
Quarter: 2012Q1

REPORT INFORMATION
  Report Type: 
  Country: None (occurrence: None)
  Receive Date: 20120127
  Receipt Date: 20110218
  Transmission Date: 20120608
  Serious: No
  Sender: FDA-Public Use
  Company Number: US-ABBOTT-11P-163-0706675-00

PATIENT
  Sex: Female
  Weight: 81.72 kg

DRUGS (4)
  1. HYDROCHLOROTHIAZIDE [Suspect]
     Indication: BLOOD PRESSURE INCREASED
     Dates: start: 20110101
  2. SYNTHROID [Concomitant]
     Indication: PITUITARY TUMOUR
  3. HUMIRA [Suspect]
     Indication: INFLAMMATORY PSEUDOTUMOUR
     Route: 058
     Dates: start: 20101101
  4. GROWTH HORMONE [Concomitant]
     Indication: BLOOD GROWTH HORMONE DECREASED

REACTIONS (9)
  - MYALGIA [None]
  - BONE PAIN [None]
  - ABDOMINAL DISTENSION [None]
  - FLUID RETENTION [None]
  - JOINT SWELLING [None]
  - INSOMNIA [None]
  - MUSCULOSKELETAL STIFFNESS [None]
  - BLOOD PRESSURE INCREASED [None]
  - WHITE BLOOD CELL COUNT INCREASED [None]
